FAERS Safety Report 6408398-X (Version None)
Quarter: 2009Q4

REPORT INFORMATION
  Report Type: 
  Country: None (occurrence: None)
  Receive Date: 20091021
  Receipt Date: 20091012
  Transmission Date: 20100525
  Serious: Yes (Other)
  Sender: FDA-Public Use
  Company Number: FR-JNJFOC-20091004430

PATIENT
  Sex: Male
  Weight: 25 kg

DRUGS (4)
  1. RISPERDAL [Suspect]
     Route: 048
  2. RISPERDAL [Suspect]
     Indication: DRUG USE FOR UNKNOWN INDICATION
     Route: 048
  3. ZARONTIN [Concomitant]
     Route: 065
  4. DEPAKENE [Concomitant]
     Route: 065

REACTIONS (4)
  - INCORRECT DOSE ADMINISTERED [None]
  - MEDICATION ERROR [None]
  - SOMNOLENCE [None]
  - WRONG TECHNIQUE IN DRUG USAGE PROCESS [None]
